FAERS Safety Report 8288525-2 (Version None)
Quarter: 2012Q2

REPORT INFORMATION
  Report Type: 
  Country: None (occurrence: None)
  Receive Date: 20120416
  Receipt Date: 20120411
  Transmission Date: 20120825
  Serious: Yes (Hospitalization, Other)
  Sender: FDA-Public Use
  Company Number: US-PFIZER INC-2012090966

PATIENT
  Sex: Female
  Weight: 68.027 kg

DRUGS (5)
  1. IBUPROFEN [Concomitant]
     Dosage: UNK
  2. METHYLPREDNISOLONE [Concomitant]
     Dosage: UNK
  3. NEURONTIN [Suspect]
     Indication: PROCEDURAL PAIN
     Dosage: 800 MG, 4X/DAY
     Route: 048
     Dates: start: 20090101
  4. KLONOPIN [Concomitant]
     Dosage: UNK
  5. HYDROCODONE [Concomitant]
     Indication: SPINAL CORD DISORDER
     Dosage: UNK

REACTIONS (5)
  - COUGH [None]
  - DYSPNOEA [None]
  - MUSCLE SPASMS [None]
  - GASTROOESOPHAGEAL REFLUX DISEASE [None]
  - VITAMIN D DECREASED [None]
